FAERS Safety Report 22982544 (Version 6)
Quarter: 2023Q4

REPORT INFORMATION
  Report Type: Report from Study
  Country: PL (occurrence: None)
  Receive Date: 20230926
  Receipt Date: 20231120
  Transmission Date: 20240110
  Serious: Yes (Hospitalization)
  Sender: FDA-Public Use
  Company Number: PL-ROCHE-3425171

PATIENT
  Age: 68 Year
  Sex: Female
  Weight: 72 kg

DRUGS (14)
  1. PERTUZUMAB\TRASTUZUMAB [Suspect]
     Active Substance: PERTUZUMAB\TRASTUZUMAB
     Indication: Breast cancer metastatic
     Dosage: DOSE FIRST ADMINISTERED, LAST STUDY DRUG ADMIN PRIOR AE/SAE: 1200MG AND 600MG MG?START DATE OF MOST
     Route: 058
     Dates: start: 20230601
  2. PERTUZUMAB\TRASTUZUMAB [Suspect]
     Active Substance: PERTUZUMAB\TRASTUZUMAB
     Route: 058
     Dates: start: 20230601
  3. DOCETAXEL [Suspect]
     Active Substance: DOCETAXEL\DOCETAXEL ANHYDROUS
     Indication: Breast cancer metastatic
     Dosage: DOSE LAST STUDY DRUG ADMIN PRIOR AE/SAE: 153.75 MG?START DATE OF MOST RECENT DOSE OF STUDY DRUG PRIO
     Route: 042
     Dates: start: 20230601
  4. METOPROLOL [Concomitant]
     Active Substance: METOPROLOL
     Indication: Atrial fibrillation
     Route: 048
  5. XARELTO [Concomitant]
     Active Substance: RIVAROXABAN
     Indication: Atrial fibrillation
     Route: 048
     Dates: end: 20230918
  6. RAMIPRIL [Concomitant]
     Active Substance: RAMIPRIL
     Indication: Atrial fibrillation
     Route: 048
     Dates: end: 20230918
  7. OMEPRAZOLE [Concomitant]
     Active Substance: OMEPRAZOLE
  8. HEPAREGEN [Concomitant]
     Route: 048
     Dates: start: 20230602
  9. MAGNE B6 [Concomitant]
     Active Substance: MAGNESIUM\PYRIDOXINE
     Route: 048
     Dates: start: 20230710, end: 20230918
  10. AUGMENTIN [Concomitant]
     Active Substance: AMOXICILLIN\CLAVULANATE POTASSIUM
     Route: 048
     Dates: start: 20230801
  11. TIMONACIC [Concomitant]
     Active Substance: TIMONACIC
     Route: 048
     Dates: start: 20230602
  12. ORNITHINE ASPARTATE [Concomitant]
     Active Substance: ORNITHINE ASPARTATE
     Route: 048
     Dates: start: 20230801
  13. BISEPTOL (POLAND) [Concomitant]
     Route: 048
     Dates: start: 20230816, end: 20230823
  14. DEXAMETHASONE [Concomitant]
     Active Substance: DEXAMETHASONE
     Route: 048
     Dates: start: 20230827, end: 20230827

REACTIONS (1)
  - Acute kidney injury [Recovered/Resolved]

NARRATIVE: CASE EVENT DATE: 20230918
